FAERS Safety Report 13589852 (Version 1)
Quarter: 2017Q2

REPORT INFORMATION
  Report Type: Spontaneous
  Country: US (occurrence: US)
  Receive Date: 20170529
  Receipt Date: 20170529
  Transmission Date: 20170830
  Serious: No
  Sender: FDA-Public Use
  Company Number: US-TRIS PHARMA, INC-2017TRISPO00086

PATIENT

DRUGS (10)
  1. ZETIA [Concomitant]
     Active Substance: EZETIMIBE
     Indication: BLOOD TRIGLYCERIDES
     Dosage: 10 MG, QD (ONCE AT 9 AT NIGHT), TAKING ON AND OFF FOR 20 YEARS
     Route: 048
  2. HYDROCODONE + APAP [Suspect]
     Active Substance: ACETAMINOPHEN\HYDROCODONE BITARTRATE
     Indication: PAIN
     Dosage: 2 DF, PRN
     Route: 048
     Dates: start: 1975
  3. MELOXICAM. [Concomitant]
     Active Substance: MELOXICAM
     Indication: ARTHRITIS
     Dosage: 15 MG, QD (ONCE DAILY)
     Route: 048
     Dates: start: 2000
  4. VALIUM [Concomitant]
     Active Substance: DIAZEPAM
     Indication: HYPERTENSION
  5. VALIUM [Concomitant]
     Active Substance: DIAZEPAM
     Indication: STRESS
  6. VIAGRA [Concomitant]
     Active Substance: SILDENAFIL CITRATE
     Indication: SEXUAL DYSFUNCTION
     Dosage: 100 MG, PRN
     Route: 048
     Dates: start: 2007
  7. VITAMIN D [Concomitant]
     Active Substance: CHOLECALCIFEROL
     Indication: ENERGY INCREASED
     Dosage: UNK (50,000 UNITS GEL TAB, ONCE A WEEK)
     Route: 048
  8. LISINOPRIL AND HYDROCHLOROTHIAZIDE [Concomitant]
     Active Substance: HYDROCHLOROTHIAZIDE\LISINOPRIL
     Indication: BLOOD PRESSURE MEASUREMENT
     Dosage: 1 DF, QD (10/12.5 MG TABLET ONCE AT BEDTIME)
     Route: 048
     Dates: start: 2007
  9. VALIUM [Concomitant]
     Active Substance: DIAZEPAM
     Indication: ANXIETY
     Dosage: 10 MG, PRN
     Route: 048
     Dates: start: 1997
  10. METOPROLOL SUCCINATE. [Concomitant]
     Active Substance: METOPROLOL SUCCINATE
     Indication: BLOOD PRESSURE MEASUREMENT
     Dosage: 50 MG, QD (50 MG TABLET AT BED TIME)
     Route: 048
     Dates: start: 2015

REACTIONS (1)
  - Psychomotor hyperactivity [Unknown]
